FAERS Safety Report 4316115-2 (Version None)
Quarter: 2004Q1

REPORT INFORMATION
  Report Type: 
  Country: None (occurrence: None)
  Receive Date: 20040312
  Receipt Date: 20040304
  Transmission Date: 20041129
  Serious: Yes (Hospitalization)
  Sender: FDA-Public Use
  Company Number: 200411735US

PATIENT
  Sex: Male

DRUGS (8)
  1. LEFLUNOMIDE [Suspect]
     Indication: RHEUMATOID ARTHRITIS
     Route: 048
     Dates: start: 20001001
  2. ENBREL [Suspect]
     Indication: RHEUMATOID ARTHRITIS
     Route: 058
     Dates: start: 20021202, end: 20040106
  3. CELECOXIB [Concomitant]
     Dates: start: 20020827
  4. LEVOTHYROXINE SODIUM [Concomitant]
  5. ASCORBIC ACID [Concomitant]
     Dates: start: 20000101
  6. TOCOPHEROL CONCENTRATE CAP [Concomitant]
     Dates: start: 20000101
  7. HYDROXYCHLOROQUINE [Concomitant]
     Dates: start: 19940101
  8. ACETAMINOPHEN [Concomitant]
     Dosage: DOSE: UNK

REACTIONS (11)
  - ABSCESS JAW [None]
  - CARDIOMEGALY [None]
  - CATHETER SITE DISCHARGE [None]
  - COUGH [None]
  - LOWER RESPIRATORY TRACT INFECTION [None]
  - PLEURAL FIBROSIS [None]
  - PNEUMOTHORAX [None]
  - PULMONARY GRANULOMA [None]
  - PURULENT DISCHARGE [None]
  - SEROMA [None]
  - WHITE BLOOD CELL COUNT INCREASED [None]
